FAERS Safety Report 19582632 (Version 1)
Quarter: 2021Q3

REPORT INFORMATION
  Report Type: Spontaneous
  Country: US (occurrence: US)
  Receive Date: 20210720
  Receipt Date: 20210720
  Transmission Date: 20211014
  Serious: No
  Sender: FDA-Public Use
  Company Number: US-MACLEODS PHARMACEUTICALS US LTD-MAC2021031933

PATIENT

DRUGS (1)
  1. SILDENAFIL CITRATE TABLETS 20 MG [Suspect]
     Active Substance: SILDENAFIL CITRATE
     Indication: ERECTILE DYSFUNCTION
     Dosage: UNK UNK, PRN, TAKE 1?3 TABLET BY MOUTH AS NEEDED 1 HOUR PRIOR TO SEXUAL ACTIVITY
     Route: 048
     Dates: start: 20200909

REACTIONS (1)
  - Drug ineffective [Unknown]

NARRATIVE: CASE EVENT DATE: 20200909
